FAERS Safety Report 15561389 (Version 2)
Quarter: 2018Q4

REPORT INFORMATION
  Report Type: Report from Study
  Country: BR (occurrence: BR)
  Receive Date: 20181029
  Receipt Date: 20181106
  Transmission Date: 20190205
  Serious: Yes (Hospitalization)
  Sender: FDA-Public Use
  Company Number: BR-UCBSA-2018024116

PATIENT
  Sex: Female
  Weight: 10 kg

DRUGS (7)
  1. LEVETIRACETAM. [Suspect]
     Active Substance: LEVETIRACETAM
     Indication: AICARDI^S SYNDROME
  2. NITRAZEPAM [Concomitant]
     Active Substance: NITRAZEPAM
     Indication: SEIZURE
     Dosage: UNK
  3. TOPIRAMATO [Concomitant]
     Active Substance: TOPIRAMATE
     Indication: SEIZURE
     Dosage: UNK
  4. VIGABATRIN. [Concomitant]
     Active Substance: VIGABATRIN
     Indication: SEIZURE
     Dosage: UNK
  5. LEVETIRACETAM. [Suspect]
     Active Substance: LEVETIRACETAM
     Indication: SEIZURE
     Dosage: 3 ML, 2X/DAY (BID)
     Route: 048
     Dates: start: 20171025
  6. LEVETIRACETAM. [Suspect]
     Active Substance: LEVETIRACETAM
     Indication: INFANTILE SPASMS
     Dosage: 3.5 ML, 2X/DAY (BID)
     Route: 048
     Dates: start: 2017
  7. LEVETIRACETAM. [Suspect]
     Active Substance: LEVETIRACETAM
     Indication: OFF LABEL USE

REACTIONS (5)
  - Decreased appetite [Not Recovered/Not Resolved]
  - Pneumonia [Recovered/Resolved]
  - Somnolence [Not Recovered/Not Resolved]
  - Off label use [Unknown]
  - Aspiration [Unknown]

NARRATIVE: CASE EVENT DATE: 2017
